FAERS Safety Report 6543382-7 (Version None)
Quarter: 2010Q1

REPORT INFORMATION
  Report Type: 
  Country: None (occurrence: None)
  Receive Date: 20100120
  Receipt Date: 20091228
  Transmission Date: 20100710
  Serious: Yes (Hospitalization)
  Sender: FDA-Public Use
  Company Number: FR-JNJFOC-20100104955

PATIENT
  Sex: Female

DRUGS (13)
  1. IXPRIM [Suspect]
     Indication: ANALGESIC THERAPY
     Route: 048
  2. KARDEGIC [Suspect]
     Indication: ISCHAEMIC HEART DISEASE PROPHYLAXIS
     Route: 048
  3. PYOSTACINE [Suspect]
     Indication: SKIN INFECTION
     Route: 048
  4. OFLOXACIN [Suspect]
     Indication: ENDOCARDITIS
     Route: 048
  5. CEFTRIAXONE [Suspect]
     Indication: ENDOCARDITIS
     Route: 065
  6. LEVOTHYROXINE SODIUM [Suspect]
     Indication: HYPOTHYROIDISM
     Route: 048
  7. TOPALGIC LP [Suspect]
     Indication: ANALGESIC THERAPY
     Route: 048
  8. LASILIX [Suspect]
     Indication: HYPERTENSION
     Route: 048
  9. LEXOMIL [Suspect]
     Indication: ANXIETY
     Route: 048
  10. AMLOR [Suspect]
     Indication: HYPERTENSION
     Route: 048
  11. VANCOMYCIN [Concomitant]
     Route: 065
  12. GENTAMYCIN-MP [Concomitant]
     Route: 065
  13. ORBENIN CAP [Concomitant]
     Route: 065

REACTIONS (1)
  - THROMBOCYTOPENIA [None]
